FAERS Safety Report 11999519 (Version 2)
Quarter: 2016Q1

REPORT INFORMATION
  Report Type: Spontaneous
  Country: US (occurrence: US)
  Receive Date: 20160204
  Receipt Date: 20160318
  Transmission Date: 20160526
  Serious: Yes (Other)
  Sender: FDA-Public Use
  Company Number: US-PFIZER INC-2016036328

PATIENT
  Age: 49 Year
  Sex: Male
  Weight: 72.57 kg

DRUGS (1)
  1. ADVIL [Suspect]
     Active Substance: IBUPROFEN
     Indication: HEADACHE
     Dosage: 200 MG, UNK (1 TABLET, 200MG, BY MOUTH)
     Route: 048
     Dates: start: 201508, end: 201508

REACTIONS (4)
  - Product odour abnormal [Unknown]
  - Throat lesion [Unknown]
  - Poor quality drug administered [Unknown]
  - Throat irritation [Unknown]

NARRATIVE: CASE EVENT DATE: 201508
